FAERS Safety Report 13244622 (Version 1)
Quarter: 2017Q1

REPORT INFORMATION
  Report Type: Spontaneous
  Country: US (occurrence: US)
  Receive Date: 20170216
  Receipt Date: 20170216
  Transmission Date: 20170428
  Serious: No
  Sender: FDA-Public Use
  Company Number: US-JAZZ-2017-US-000992

PATIENT
  Sex: Female

DRUGS (31)
  1. VITAMIN C [Concomitant]
     Active Substance: ASCORBIC ACID
  2. PROBIOTIC                          /06395501/ [Concomitant]
     Active Substance: BIFIDOBACTERIUM ANIMALIS SUBSP. LACTIS
  3. BENZOYL PEROXIDE. [Concomitant]
     Active Substance: BENZOYL PEROXIDE
  4. MEFENAMIC ACID. [Concomitant]
     Active Substance: MEFENAMIC ACID
  5. NUVIGIL [Concomitant]
     Active Substance: ARMODAFINIL
  6. WELLBUTRIN [Concomitant]
     Active Substance: BUPROPION HYDROCHLORIDE
  7. CLONAZEPAM. [Concomitant]
     Active Substance: CLONAZEPAM
  8. PROPANOLOL                         /00030001/ [Concomitant]
     Active Substance: PROPRANOLOL HYDROCHLORIDE
  9. MAGNESIUM OXIDE. [Concomitant]
     Active Substance: MAGNESIUM OXIDE
  10. MSM [Concomitant]
     Active Substance: DIMETHYL SULFONE
  11. ORA                                /00273201/ [Concomitant]
  12. XYREM [Suspect]
     Active Substance: SODIUM OXYBATE
     Dosage: 3.5 G, BID
     Route: 048
     Dates: start: 2016
  13. CALCIUM CITRATE [Concomitant]
     Active Substance: CALCIUM CITRATE
  14. ADDERALL [Concomitant]
     Active Substance: AMPHETAMINE ASPARTATE\AMPHETAMINE SULFATE\DEXTROAMPHETAMINE SACCHARATE\DEXTROAMPHETAMINE SULFATE
  15. ULTRA FLORA IB [Concomitant]
  16. KLOR-CON [Concomitant]
     Active Substance: POTASSIUM CHLORIDE
  17. CATNIP                             /05809201/ [Concomitant]
  18. IRON [Concomitant]
     Active Substance: IRON
  19. XYREM [Suspect]
     Active Substance: SODIUM OXYBATE
     Indication: NARCOLEPSY
     Dosage: 2.25 G, BID
     Route: 048
     Dates: start: 201007, end: 2010
  20. XYREM [Suspect]
     Active Substance: SODIUM OXYBATE
     Dosage: DOSE ADJUSTMENT
     Route: 048
     Dates: start: 2010, end: 2016
  21. OMEGA 3 FISH OIL                   /01334101/ [Concomitant]
     Active Substance: FISH OIL
  22. MISOPROSTOL. [Concomitant]
     Active Substance: MISOPROSTOL
  23. ERYTHROMYCIN BENZOYL PEROXIDE [Concomitant]
  24. PROMETRIUM [Concomitant]
     Active Substance: PROGESTERONE
  25. SINUS SUPPORT EF [Concomitant]
  26. DULERA [Concomitant]
     Active Substance: FORMOTEROL FUMARATE DIHYDRATE\MOMETASONE FUROATE
  27. MVI                                /01825701/ [Concomitant]
     Active Substance: VITAMINS
  28. LACTOFERRIN [Concomitant]
     Active Substance: LACTOFERRIN
  29. PONSTEL [Concomitant]
     Active Substance: MEFENAMIC ACID
  30. MINOCYCLINE HCL [Concomitant]
     Active Substance: MINOCYCLINE HYDROCHLORIDE
  31. CHAMOMILE                          /00512601/ [Concomitant]

REACTIONS (2)
  - Gastrooesophageal reflux disease [Recovered/Resolved]
  - Acne [Recovering/Resolving]
